FAERS Safety Report 7524967-8 (Version None)
Quarter: 2011Q2

REPORT INFORMATION
  Report Type: 
  Country: None (occurrence: None)
  Receive Date: 20110606
  Receipt Date: 20110524
  Transmission Date: 20111010
  Serious: Yes (Other)
  Sender: FDA-Public Use
  Company Number: US-ELI_LILLY_AND_COMPANY-US201104006550

PATIENT
  Age: 25 Year
  Sex: Male
  Weight: 171.88 kg

DRUGS (2)
  1. ZYPREXA [Suspect]
     Indication: SCHIZOPHRENIA
     Dosage: 20 MG, BID
     Route: 048
     Dates: start: 20080915
  2. DEPAKOTE [Concomitant]
     Dosage: UNK, TID

REACTIONS (6)
  - WEIGHT INCREASED [None]
  - OBESITY [None]
  - INCREASED APPETITE [None]
  - OVERDOSE [None]
  - SCROTAL OEDEMA [None]
  - DECREASED ACTIVITY [None]
